FAERS Safety Report 12412113 (Version 3)
Quarter: 2016Q3

REPORT INFORMATION
  Report Type: Spontaneous
  Country: US (occurrence: US)
  Receive Date: 20160527
  Receipt Date: 20160725
  Transmission Date: 20161109
  Serious: Yes (Other)
  Sender: FDA-Public Use
  Company Number: US-PFIZER INC-2016277720

PATIENT
  Age: 59 Year
  Sex: Female
  Weight: 59 kg

DRUGS (3)
  1. CHANTIX [Suspect]
     Active Substance: VARENICLINE TARTRATE
     Indication: NICOTINE DEPENDENCE
     Dosage: 0.5 MG, 1X/DAY IN THE MORNING
     Route: 048
     Dates: start: 201605, end: 20160520
  2. CHANTIX [Suspect]
     Active Substance: VARENICLINE TARTRATE
     Indication: SMOKING CESSATION THERAPY
     Dosage: 0.5 MG 2X/DAY  ONE IN THE MORNING AND ONE IN THE EVENING
     Route: 048
     Dates: start: 20160510, end: 201605
  3. GABAPENTIN. [Concomitant]
     Active Substance: GABAPENTIN
     Indication: SEIZURE
     Dosage: 100 MG, 3X/DAY EVERY 8 HOURS
     Dates: start: 201509

REACTIONS (15)
  - Blister [Not Recovered/Not Resolved]
  - Speech disorder [Recovered/Resolved]
  - Face oedema [Recovered/Resolved]
  - Ear infection [Unknown]
  - Rash [Recovered/Resolved]
  - Malaise [Unknown]
  - Erythema [Recovered/Resolved]
  - Drug hypersensitivity [Unknown]
  - Pharyngeal oedema [Recovered/Resolved]
  - Ear disorder [Not Recovered/Not Resolved]
  - Oral mucosal blistering [Recovered/Resolved]
  - Dyspnoea [Unknown]
  - Ear swelling [Recovered/Resolved]
  - Furuncle [Recovered/Resolved]
  - Pain [Unknown]

NARRATIVE: CASE EVENT DATE: 201605
